FAERS Safety Report 5871227-7 (Version None)
Quarter: 2008Q3

REPORT INFORMATION
  Report Type: 
  Country: None (occurrence: None)
  Receive Date: 20080902
  Receipt Date: 20080822
  Transmission Date: 20090109
  Serious: Yes (Other)
  Sender: FDA-Public Use
  Company Number: 2008JP003153

PATIENT
  Age: 65 Year
  Weight: 69.5 kg

DRUGS (8)
  1. VESICARE [Suspect]
     Indication: HYPERTONIC BLADDER
     Dosage: 5MG, UID/QD, ORAL
     Route: 048
     Dates: end: 20080404
  2. VESICARE [Suspect]
     Indication: HYPERTONIC BLADDER
     Dosage: 5MG, UID/QD, ORAL
     Route: 048
     Dates: start: 20080611, end: 20080627
  3. EXCEGRAN (ZONISAMIDE) TABLET [Concomitant]
  4. NORVASC [Concomitant]
  5. VALPROATE SODIUM (VALPROATE SODIUM) FINE GRANULE [Concomitant]
  6. DEPAKENE (VALPROATE SODIUM) TABLET [Concomitant]
  7. ALEVIATIN (PHENYTOIN) TABLET [Concomitant]
  8. VALPROIC ACID (VALPROIC ACID) TABLET [Concomitant]

REACTIONS (5)
  - CHAPPED LIPS [None]
  - CONVULSION [None]
  - DRUG LEVEL INCREASED [None]
  - LOSS OF CONSCIOUSNESS [None]
  - SOMNOLENCE [None]
